FAERS Safety Report 21196637 (Version 1)
Quarter: 2022Q3

REPORT INFORMATION
  Report Type: Spontaneous
  Country: HR (occurrence: HR)
  Receive Date: 20220810
  Receipt Date: 20220810
  Transmission Date: 20221027
  Serious: No
  Sender: FDA-Public Use
  Company Number: HR-JAZZ-2021-HR-022502

PATIENT
  Age: 6 Year
  Sex: Female

DRUGS (1)
  1. VYXEOS [Suspect]
     Active Substance: CYTARABINE\DAUNORUBICIN
     Indication: Acute myeloid leukaemia
     Dosage: 135 IU/M2 - 1,3,5 DAY IN INDUCTION CYCLE
     Route: 042

REACTIONS (1)
  - Off label use [Unknown]
